FAERS Safety Report 16654906 (Version 1)
Quarter: 2019Q3

REPORT INFORMATION
  Report Type: Spontaneous
  Country: US (occurrence: US)
  Receive Date: 20190801
  Receipt Date: 20190801
  Transmission Date: 20191004
  Serious: No
  Sender: FDA-Public Use
  Company Number: US-AMGEN-USASP2019118598

PATIENT
  Age: 44 Year
  Sex: Female

DRUGS (1)
  1. REPATHA [Suspect]
     Active Substance: EVOLOCUMAB
     Indication: BLOOD CHOLESTEROL INCREASED
     Dosage: UNK, Q2WK
     Route: 065

REACTIONS (8)
  - Hypoaesthesia [Unknown]
  - Rash macular [Not Recovered/Not Resolved]
  - Injection site urticaria [Recovered/Resolved]
  - Injection site haemorrhage [Unknown]
  - Rash vesicular [Unknown]
  - Injection site swelling [Not Recovered/Not Resolved]
  - Rash [Unknown]
  - Injection site pain [Unknown]

NARRATIVE: CASE EVENT DATE: 2019
